FAERS Safety Report 7283366-7 (Version None)
Quarter: 2011Q1

REPORT INFORMATION
  Report Type: 
  Country: None (occurrence: None)
  Receive Date: 20110209
  Receipt Date: 20100616
  Transmission Date: 20110831
  Serious: No
  Sender: FDA-Public Use
  Company Number: A0865515A

PATIENT
  Age: 62 Year
  Sex: Female

DRUGS (3)
  1. LIPITOR [Concomitant]
  2. PAXIL [Suspect]
     Dosage: 10MG PER DAY
     Route: 048
  3. PAROXETINE HCL [Suspect]

REACTIONS (2)
  - URTICARIA [None]
  - LIBIDO DECREASED [None]
